FAERS Safety Report 5699981-8 (Version None)
Quarter: 2008Q2

REPORT INFORMATION
  Report Type: 
  Country: None (occurrence: None)
  Receive Date: 20080410
  Receipt Date: 20080401
  Transmission Date: 20081010
  Serious: Yes (Other)
  Sender: FDA-Public Use
  Company Number: PHRM2008FR01109

PATIENT
  Age: 83 Year
  Sex: Female
  Weight: 58 kg

DRUGS (2)
  1. VISKEN [Suspect]
     Indication: ESSENTIAL HYPERTENSION
     Dosage: 5 MG, BID
     Route: 048
     Dates: start: 20030221, end: 20080326
  2. EXFORGE [Suspect]
     Indication: HYPERTENSION
     Route: 048
     Dates: start: 20080327

REACTIONS (4)
  - BLOOD CREATINE PHOSPHOKINASE INCREASED [None]
  - BLOOD LACTATE DEHYDROGENASE INCREASED [None]
  - MYALGIA [None]
  - PAIN IN EXTREMITY [None]
